FAERS Safety Report 6545641-0 (Version None)
Quarter: 2010Q1

REPORT INFORMATION
  Report Type: 
  Country: None (occurrence: None)
  Receive Date: 20100119
  Receipt Date: 20100108
  Transmission Date: 20100710
  Serious: Yes (Death)
  Sender: FDA-Public Use
  Company Number: OPER20100005

PATIENT
  Age: 44 Year
  Sex: Male

DRUGS (5)
  1. OPANA ER [Suspect]
     Indication: DRUG USE FOR UNKNOWN INDICATION
  2. SMOKE (CARBON MONOXIDE) [Suspect]
  3. COCAINE [Suspect]
     Indication: DRUG USE FOR UNKNOWN INDICATION
  4. OXYCODONE HCL [Suspect]
     Indication: DRUG USE FOR UNKNOWN INDICATION
  5. BENZODIAZEPINE [Suspect]
     Indication: DRUG USE FOR UNKNOWN INDICATION

REACTIONS (1)
  - DEATH [None]
